FAERS Safety Report 4951311-2 (Version None)
Quarter: 2006Q1

REPORT INFORMATION
  Report Type: 
  Country: None (occurrence: None)
  Receive Date: 20060317
  Receipt Date: 20060301
  Transmission Date: 20060701
  Serious: Yes (Other)
  Sender: FDA-Public Use
  Company Number: DE200603001391

PATIENT
  Sex: Female

DRUGS (1)
  1. EVISTA [Suspect]
     Dosage: ORAL
     Route: 048
     Dates: start: 20040101, end: 20050101

REACTIONS (5)
  - BACK PAIN [None]
  - CYSTITIS [None]
  - HYPERTROPHY BREAST [None]
  - MUSCLE SPASMS [None]
  - WEIGHT INCREASED [None]
